FAERS Safety Report 7297574-2 (Version None)
Quarter: 2011Q1

REPORT INFORMATION
  Report Type: 
  Country: None (occurrence: None)
  Receive Date: 20110216
  Receipt Date: 20110214
  Transmission Date: 20110831
  Serious: Yes (Hospitalization)
  Sender: FDA-Public Use
  Company Number: BE-ABBOTT-11P-013-0705177-00

PATIENT
  Sex: Male
  Weight: 84.5 kg

DRUGS (4)
  1. STEOVIT D3 [Concomitant]
     Indication: PRODUCT USED FOR UNKNOWN INDICATION
     Dates: start: 20101001
  2. TRUVADA [Concomitant]
     Indication: PRODUCT USED FOR UNKNOWN INDICATION
     Dates: start: 20090116
  3. KELP [Concomitant]
     Indication: PRODUCT USED FOR UNKNOWN INDICATION
     Dates: start: 20110101
  4. KALETRA [Suspect]
     Indication: HIV INFECTION
     Dosage: 200MG/50MG
     Dates: start: 20080211

REACTIONS (2)
  - URINARY BLADDER POLYP [None]
  - INGUINAL HERNIA [None]
